FAERS Safety Report 21993231 (Version 1)
Quarter: 2023Q1

REPORT INFORMATION
  Report Type: Spontaneous
  Country: NL (occurrence: NL)
  Receive Date: 20230215
  Receipt Date: 20230215
  Transmission Date: 20230418
  Serious: Yes (Other)
  Sender: FDA-Public Use
  Company Number: None

PATIENT
  Sex: Female
  Weight: 51 kg

DRUGS (1)
  1. TRIMETHOPRIM [Suspect]
     Active Substance: TRIMETHOPRIM
     Indication: Cystitis
     Dosage: 300 MG (MILLIGRAM),BRAND NAME NOT SPECIFIED
     Dates: start: 20230106, end: 20230111

REACTIONS (1)
  - Pseudomembranous colitis [Not Recovered/Not Resolved]
